FAERS Safety Report 4553279-X (Version None)
Quarter: 2005Q1

REPORT INFORMATION
  Report Type: 
  Country: None (occurrence: None)
  Receive Date: 20050113
  Receipt Date: 20050104
  Transmission Date: 20050727
  Serious: Yes (Death, Hospitalization)
  Sender: FDA-Public Use
  Company Number: 2004-10-0038

PATIENT
  Age: 36 Year
  Sex: Male
  Weight: 80 kg

DRUGS (11)
  1. VIRAFERONPEG [Suspect]
     Indication: HEPATITIS C
     Dosage: 120 MCG SUBCUTANEOUS
     Route: 058
     Dates: start: 20040927, end: 20040927
  2. REBETOL [Suspect]
     Indication: HEPATITIS C
     Dosage: 1000 MG QD ORAL
     Route: 048
     Dates: start: 20040901, end: 20041001
  3. NEURONTIN [Suspect]
     Indication: ENCEPHALOPATHY
     Dosage: 400 MG TID ORAL
     Route: 048
     Dates: start: 20020101, end: 20041101
  4. KALETRA [Suspect]
     Indication: HIV INFECTION
     Dosage: 3 DOSES BID ORAL
     Route: 048
     Dates: start: 20020101, end: 20041101
  5. COMBIVIR [Suspect]
     Indication: HIV INFECTION
     Dosage: 150 MG BID ORAL
     Route: 048
     Dates: start: 20020101, end: 20041101
  6. SUBUTEX [Suspect]
     Indication: DRUG ABUSER
     Dosage: 8 MG QD ORAL
     Route: 048
     Dates: end: 20041001
  7. CLARITHROMYCIN [Concomitant]
  8. MINOCYCLINE HCL [Concomitant]
  9. ALDACTONE [Concomitant]
  10. PENTACARINAT [Concomitant]
  11. LASILIX [Concomitant]

REACTIONS (5)
  - CHILLS [None]
  - HEPATIC ENCEPHALOPATHY [None]
  - HEPATIC FAILURE [None]
  - OEDEMA [None]
  - PYREXIA [None]
